FAERS Safety Report 13151356 (Version 2)
Quarter: 2017Q1

REPORT INFORMATION
  Report Type: Report from Study
  Country: US (occurrence: US)
  Receive Date: 20170124
  Receipt Date: 20170306
  Transmission Date: 20170428
  Serious: No
  Sender: FDA-Public Use
  Company Number: US-AMGEN-USASL2017009834

PATIENT
  Sex: Female

DRUGS (1)
  1. ENBREL [Suspect]
     Active Substance: ETANERCEPT
     Indication: RHEUMATOID ARTHRITIS
     Dosage: 50 MG, QWK
     Route: 065

REACTIONS (8)
  - Epistaxis [Unknown]
  - Hot flush [Unknown]
  - Cough [Not Recovered/Not Resolved]
  - Malaise [Unknown]
  - Pulmonary pain [Unknown]
  - Rhinorrhoea [Unknown]
  - Fatigue [Unknown]
  - Injection site bruising [Unknown]
